FAERS Safety Report 7120626-4 (Version None)
Quarter: 2010Q4

REPORT INFORMATION
  Report Type: 
  Country: None (occurrence: None)
  Receive Date: 20101124
  Receipt Date: 20100603
  Transmission Date: 20110411
  Serious: Yes (Other)
  Sender: FDA-Public Use
  Company Number: GB-RANBAXY-2010R1-38704

PATIENT

DRUGS (17)
  1. ADRENALINE [Suspect]
     Indication: CATARACT OPERATION
     Dosage: UNK
     Route: 031
     Dates: start: 20080319, end: 20080319
  2. CEFUROXIME [Suspect]
     Indication: CATARACT OPERATION
     Dosage: 250 MG, QD
     Route: 031
     Dates: start: 20080319, end: 20080319
  3. HYALURONIC ACID [Suspect]
     Indication: CATARACT OPERATION
     Dosage: UNK
     Route: 031
     Dates: start: 20080319, end: 20080319
  4. PHENYLEPHRINE HCL [Suspect]
     Indication: CATARACT OPERATION
     Dosage: 10%
     Route: 031
     Dates: start: 20080319, end: 20080319
  5. ASPIRIN [Concomitant]
     Indication: PRODUCT USED FOR UNKNOWN INDICATION
     Dosage: 75 MG, UNK
     Route: 048
  6. ATENOLOL [Concomitant]
     Indication: PRODUCT USED FOR UNKNOWN INDICATION
     Dosage: 50 MG, UNK
     Route: 048
  7. CYCLOPENTOLATE HCL [Concomitant]
     Indication: CYCLOPLEGIA
     Dosage: UNK
     Route: 047
     Dates: start: 20080319, end: 20080319
  8. DIAMOX SRC [Concomitant]
     Indication: PRODUCT USED FOR UNKNOWN INDICATION
     Dosage: 250 MG, QD
     Route: 065
     Dates: start: 20080319, end: 20080319
  9. GLICLAZIDE [Concomitant]
     Indication: PRODUCT USED FOR UNKNOWN INDICATION
     Dosage: 80 MG, UNK
     Route: 048
  10. HYALASE [Concomitant]
     Indication: LOCAL ANAESTHESIA
     Dosage: UNK
     Route: 065
     Dates: start: 20080319, end: 20080319
  11. LIDOCAINE [Concomitant]
     Indication: LOCAL ANAESTHESIA
     Dosage: 2 %, SINGLE
     Route: 065
     Dates: start: 20080319, end: 20080319
  12. MAXITROL [Concomitant]
     Indication: PRODUCT USED FOR UNKNOWN INDICATION
     Dosage: 1 DF, TID
     Route: 047
     Dates: start: 20080319
  13. METFORMIN HCL [Concomitant]
     Indication: PRODUCT USED FOR UNKNOWN INDICATION
     Dosage: UNK
     Route: 048
  14. POVIDONE IODINE [Concomitant]
     Indication: PRODUCT USED FOR UNKNOWN INDICATION
     Dosage: UNK
     Route: 061
     Dates: start: 20080319, end: 20080319
  15. RAMIPRIL [Concomitant]
     Indication: PRODUCT USED FOR UNKNOWN INDICATION
     Dosage: UNK
     Route: 048
  16. SIMVASTATIN [Concomitant]
     Indication: PRODUCT USED FOR UNKNOWN INDICATION
     Dosage: UNK
     Route: 048
  17. VOLTAREN [Concomitant]
     Indication: PRODUCT USED FOR UNKNOWN INDICATION
     Dosage: UNK
     Route: 047
     Dates: start: 20080319, end: 20080319

REACTIONS (5)
  - BLINDNESS [None]
  - DRUG TOXICITY [None]
  - RETINAL INJURY [None]
  - RETINOGRAM ABNORMAL [None]
  - VISUAL ACUITY REDUCED [None]
